FAERS Safety Report 6554452-1 (Version None)
Quarter: 2010Q1

REPORT INFORMATION
  Report Type: 
  Country: None (occurrence: None)
  Receive Date: 20100125
  Receipt Date: 20100125
  Transmission Date: 20100710
  Serious: Yes (Life-Threatening, Hospitalization, Disabling)
  Sender: FDA-Public Use
  Company Number: None

PATIENT
  Age: 25 Year
  Sex: Female
  Weight: 88.905 kg

DRUGS (4)
  1. ORTHO TRI-CYCLEN [Suspect]
     Indication: CONTRACEPTION
     Dosage: UNKOWN DAILY PO
     Route: 048
     Dates: start: 20091101, end: 20091110
  2. PERCOCET [Concomitant]
  3. NAPROSYN [Concomitant]
  4. DIAZEPAM [Concomitant]

REACTIONS (3)
  - DRUG INTOLERANCE [None]
  - PLANTAR FASCIITIS [None]
  - PRODUCT SUBSTITUTION ISSUE [None]
